FAERS Safety Report 21694495 (Version 1)
Quarter: 2022Q4

REPORT INFORMATION
  Report Type: Spontaneous
  Country: US (occurrence: US)
  Receive Date: 20221207
  Receipt Date: 20221207
  Transmission Date: 20230112
  Serious: Yes (Other)
  Sender: FDA-Public Use
  Company Number: US-PFIZER INC-PV202200117510

PATIENT
  Age: 70 Year
  Sex: Female

DRUGS (1)
  1. XELJANZ [Suspect]
     Active Substance: TOFACITINIB CITRATE
     Dosage: 5 MG

REACTIONS (7)
  - Nephrolithiasis [Unknown]
  - Patella fracture [Unknown]
  - Fall [Unknown]
  - Gait disturbance [Unknown]
  - Impaired driving ability [Unknown]
  - Herpes zoster [Unknown]
  - Influenza [Unknown]

NARRATIVE: CASE EVENT DATE: 20220101
